FAERS Safety Report 9836563 (Version 1)
Quarter: 2014Q1

REPORT INFORMATION
  Report Type: Spontaneous
  Country: US (occurrence: US)
  Receive Date: 20140123
  Receipt Date: 20140123
  Transmission Date: 20141002
  Serious: Yes (Hospitalization, Other)
  Sender: FDA-Public Use
  Company Number: US-SUN PHARMACEUTICAL INDUSTRIES LTD-2014SUN00038

PATIENT
  Age: 47 Year
  Sex: Male

DRUGS (14)
  1. ONDANSETRON TABS 4MG [Suspect]
     Indication: GENERAL ANAESTHESIA
     Dosage: 4 MG, UNK
     Route: 065
  2. DULOXETINE [Suspect]
     Indication: DEPRESSION
     Dosage: 120 MG, DAILY
     Route: 065
  3. TRAZODONE [Suspect]
     Indication: PRODUCT USED FOR UNKNOWN INDICATION
     Dosage: 100 MG, EVERY EVENING
  4. FENTANYL [Suspect]
     Indication: GENERAL ANAESTHESIA
     Route: 065
  5. FENTANYL [Suspect]
     Indication: PAIN
     Dosage: TWO IV 50 MCG DOSES
  6. GABAPENTIN [Concomitant]
     Indication: PAIN
     Dosage: 2700 MG, DAILY
     Route: 065
  7. MIDAZOLAM [Concomitant]
     Indication: GENERAL ANAESTHESIA
  8. PROPOFOL [Concomitant]
     Indication: GENERAL ANAESTHESIA
  9. SUCCINYLCHOLINE [Concomitant]
     Indication: GENERAL ANAESTHESIA
  10. DESFLURANE [Concomitant]
     Indication: GENERAL ANAESTHESIA
  11. VECURONIUM [Concomitant]
     Indication: GENERAL ANAESTHESIA
     Dosage: 15 MG IN DIVIDED DOSES
  12. KETAMINE [Concomitant]
     Indication: GENERAL ANAESTHESIA
     Dosage: 20 MG, UNK
  13. GLYCOPYRROLATE [Concomitant]
     Indication: MUSCLE RELAXANT THERAPY
     Dosage: 0.4 MG, UNK
     Route: 065
  14. NEOSTIGMINE [Concomitant]
     Indication: MUSCLE RELAXANT THERAPY
     Dosage: 2.5 MG, UNK
     Route: 065

REACTIONS (1)
  - Serotonin syndrome [Recovered/Resolved]
